FAERS Safety Report 6304886-5 (Version None)
Quarter: 2009Q3

REPORT INFORMATION
  Report Type: 
  Country: None (occurrence: None)
  Receive Date: 20090806
  Receipt Date: 20090721
  Transmission Date: 20100115
  Serious: Yes (Hospitalization)
  Sender: FDA-Public Use
  Company Number: 2009-1674

PATIENT
  Age: 53 Year
  Sex: Female

DRUGS (4)
  1. LANREOTIDE AUTOGEL (LANREOTIDE) (LANREOTIDE ACETATE) [Suspect]
     Indication: NEOPLASM MALIGNANT
     Dosage: (90 MG, 1 IN 28 D), SUBCUTANEOUS
     Route: 058
     Dates: start: 20090302
  2. OXYCONTIN [Concomitant]
  3. PRILOSEC [Concomitant]
  4. RAMIPRIL [Concomitant]

REACTIONS (6)
  - BLOOD ELECTROLYTES ABNORMAL [None]
  - DIARRHOEA [None]
  - HYPERTENSION [None]
  - INJECTION SITE REACTION [None]
  - MALAISE [None]
  - VOMITING [None]
